FAERS Safety Report 5638667-2 (Version None)
Quarter: 2008Q1

REPORT INFORMATION
  Report Type: 
  Country: None (occurrence: None)
  Receive Date: 20080226
  Receipt Date: 20070918
  Transmission Date: 20080703
  Serious: No
  Sender: FDA-Public Use
  Company Number: A0682731A

PATIENT
  Age: 41 Year
  Sex: Female

DRUGS (5)
  1. IMITREX [Suspect]
     Indication: MIGRAINE
     Dosage: 4MG AS REQUIRED
     Route: 058
     Dates: start: 19970101
  2. TOPAMAX [Concomitant]
  3. XANAX [Concomitant]
  4. LEXAPRO [Concomitant]
  5. SOMA [Concomitant]

REACTIONS (4)
  - DRUG INEFFECTIVE [None]
  - MIGRAINE [None]
  - PHARMACEUTICAL PRODUCT COMPLAINT [None]
  - THERAPEUTIC RESPONSE DECREASED [None]
